FAERS Safety Report 10367202 (Version 1)
Quarter: 2014Q3

REPORT INFORMATION
  Report Type: Spontaneous
  Country: US (occurrence: None)
  Receive Date: 20140805
  Receipt Date: 20140805
  Transmission Date: 20150326
  Serious: No
  Sender: FDA-Public Use
  Company Number: None

PATIENT
  Age: 57 Year
  Sex: Male
  Weight: 86.18 kg

DRUGS (4)
  1. WELLBUTRIN [Concomitant]
     Active Substance: BUPROPION HYDROCHLORIDE
  2. Z-PACK [Suspect]
     Active Substance: AZITHROMYCIN DIHYDRATE
     Indication: PHARYNGITIS STREPTOCOCCAL
     Route: 048
     Dates: start: 20140721, end: 20140725
  3. COREG [Concomitant]
     Active Substance: CARVEDILOL
  4. LISINOPRIL. [Concomitant]
     Active Substance: LISINOPRIL

REACTIONS (1)
  - Electrocardiogram abnormal [None]

NARRATIVE: CASE EVENT DATE: 20140722
